FAERS Safety Report 14226331 (Version 4)
Quarter: 2018Q1

REPORT INFORMATION
  Report Type: Spontaneous
  Country: JP (occurrence: JP)
  Receive Date: 20171127
  Receipt Date: 20180205
  Transmission Date: 20180508
  Serious: Yes (Hospitalization)
  Sender: FDA-Public Use
  Company Number: JP-OTSUKA-2017_025808

PATIENT
  Age: 6 Year
  Sex: Male

DRUGS (7)
  1. RAMOSETRON HYDROCHLORIDE [Concomitant]
     Active Substance: RAMOSETRON HYDROCHLORIDE
     Indication: PRODUCT USED FOR UNKNOWN INDICATION
     Dosage: 0.15 MG, DAILY DOSE
     Route: 041
     Dates: start: 20160421, end: 20160426
  2. ALKERAN [Suspect]
     Active Substance: MELPHALAN
     Indication: BONE MARROW CONDITIONING REGIMEN
     Dosage: 93.8 MG, DAILY DOSE
     Route: 041
     Dates: start: 20160426, end: 20160426
  3. ALKERAN [Suspect]
     Active Substance: MELPHALAN
     Indication: BONE MARROW CONDITIONING REGIMEN
     Dosage: 48 MG, DAILY DOSE
     Route: 041
     Dates: start: 20160827, end: 20160828
  4. DALTEPARIN SODIUM [Concomitant]
     Active Substance: DALTEPARIN SODIUM
     Indication: PRODUCT USED FOR UNKNOWN INDICATION
     Dosage: 1300 DF, DAILY DOSE
     Route: 041
     Dates: start: 20160420, end: 20160524
  5. BUSULFEX [Suspect]
     Active Substance: BUSULFAN
     Indication: CHEMOTHERAPY
  6. FLUDARA [Suspect]
     Active Substance: FLUDARABINE PHOSPHATE
     Indication: BONE MARROW CONDITIONING REGIMEN
     Dosage: 17 MG, DAILY DOSE
     Route: 041
     Dates: start: 20160823, end: 20160827
  7. BUSULFEX [Suspect]
     Active Substance: BUSULFAN
     Indication: BONE MARROW CONDITIONING REGIMEN
     Dosage: 73.6 MG, DAILY DOSE
     Route: 041
     Dates: start: 20160421, end: 20160425

REACTIONS (1)
  - Gastric antral vascular ectasia [Recovered/Resolved]

NARRATIVE: CASE EVENT DATE: 20160919
